FAERS Safety Report 13193964 (Version 2)
Quarter: 2017Q1

REPORT INFORMATION
  Report Type: Spontaneous
  Country: PT (occurrence: PT)
  Receive Date: 20170207
  Receipt Date: 20170210
  Transmission Date: 20170428
  Serious: Yes (Hospitalization)
  Sender: FDA-Public Use
  Company Number: PT-MYLANLABS-2017M1007430

PATIENT

DRUGS (2)
  1. CLOZAPINE. [Suspect]
     Active Substance: CLOZAPINE
     Indication: SCHIZOPHRENIA
     Dosage: UNK
  2. RISPERIDONE. [Suspect]
     Active Substance: RISPERIDONE
     Indication: SCHIZOPHRENIA
     Dosage: UNK

REACTIONS (6)
  - Hyponatraemia [Unknown]
  - Polydipsia psychogenic [Unknown]
  - Brain oedema [Recovering/Resolving]
  - Rhabdomyolysis [Recovering/Resolving]
  - Coma [Unknown]
  - Generalised tonic-clonic seizure [Unknown]
